FAERS Safety Report 16302642 (Version 1)
Quarter: 2019Q2

REPORT INFORMATION
  Report Type: Spontaneous
  Country: US (occurrence: US)
  Receive Date: 20190513
  Receipt Date: 20190513
  Transmission Date: 20190711
  Serious: No
  Sender: FDA-Public Use
  Company Number: US-AUROBINDO-AUR-APL-2019-004662

PATIENT

DRUGS (1)
  1. AMLODIPINE AND VALSARTAN TABLET USP 5 MG/160 MG [Suspect]
     Active Substance: AMLODIPINE\VALSARTAN
     Indication: HYPERTENSION
     Dosage: 1 TABLET PER DAY
     Route: 065

REACTIONS (5)
  - Dizziness [Unknown]
  - Abdominal pain upper [Unknown]
  - Feeling abnormal [Unknown]
  - Dyspepsia [Unknown]
  - Headache [Unknown]
